FAERS Safety Report 21214080 (Version 1)
Quarter: 2022Q3

REPORT INFORMATION
  Report Type: Spontaneous
  Country: DK (occurrence: DK)
  Receive Date: 20220816
  Receipt Date: 20220816
  Transmission Date: 20221027
  Serious: Yes (Disabling)
  Sender: FDA-Public Use
  Company Number: None

PATIENT
  Age: 51 Year
  Sex: Male
  Weight: 65 kg

DRUGS (8)
  1. XOLAIR [Suspect]
     Active Substance: OMALIZUMAB
     Indication: Asthma
     Route: 058
     Dates: start: 20220307
  2. XOLAIR [Suspect]
     Active Substance: OMALIZUMAB
     Route: 058
     Dates: start: 20220406
  3. XOLAIR [Suspect]
     Active Substance: OMALIZUMAB
     Route: 058
     Dates: start: 20220505
  4. FENOTEROL HYDROBROMIDE\IPRATROPIUM BROMIDE [Concomitant]
     Active Substance: FENOTEROL HYDROBROMIDE\IPRATROPIUM BROMIDE
     Indication: Lung disorder
     Dosage: 1 DOSAGE FORM, PRN (STRENGTH: 50 + 20 MICROG./DOSE)
     Dates: start: 20210624
  5. MONTELUKAST\MONTELUKAST SODIUM [Concomitant]
     Active Substance: MONTELUKAST\MONTELUKAST SODIUM
     Indication: Asthma prophylaxis
     Dosage: 10 MG, QD
     Dates: start: 20210603
  6. ALTIFEX [Concomitant]
     Indication: Seasonal allergy
     Dosage: 180 MG, QD
     Dates: start: 20210615
  7. SYMBICORT [Concomitant]
     Active Substance: BUDESONIDE\FORMOTEROL FUMARATE DIHYDRATE
     Indication: Asthma
     Dosage: 4 DOSAGE FORM, QD (STRENGTH: 9+320 MICROG./DOSE)
     Dates: start: 20140607
  8. NASONEX [Concomitant]
     Active Substance: MOMETASONE FUROATE
     Indication: Seasonal allergy
     Dosage: 200 UG, QD (STRENGTH: 50 MICROG./DOSE)
     Dates: start: 20150430

REACTIONS (1)
  - Visual impairment [Not Recovered/Not Resolved]
